FAERS Safety Report 4673303-3 (Version None)
Quarter: 2005Q2

REPORT INFORMATION
  Report Type: 
  Country: None (occurrence: None)
  Receive Date: 20050524
  Receipt Date: 20050524
  Transmission Date: 20051028
  Serious: Yes (Hospitalization)
  Sender: FDA-Public Use
  Company Number: None

PATIENT
  Age: 66 Year
  Sex: Male
  Weight: 63.6 kg

DRUGS (10)
  1. LISINOPRIL [Suspect]
     Dosage: 20 MG PO DAILY
     Route: 048
  2. POTASSIUM CHLORIDE [Suspect]
     Dosage: 10 MEQ PO DAILY
     Route: 048
  3. METFORMIN [Concomitant]
  4. SIMVASTATIN [Concomitant]
  5. GLYBURIDE [Concomitant]
  6. FUROSEMIDE [Concomitant]
  7. POTASSIUM CHLORIDE [Concomitant]
  8. LT4 [Concomitant]
  9. METOPROLOL [Concomitant]
  10. ASPIRIN [Concomitant]

REACTIONS (5)
  - CARDIAC FAILURE CONGESTIVE [None]
  - ECHOCARDIOGRAM ABNORMAL [None]
  - HYPERKALAEMIA [None]
  - HYPERTENSION [None]
  - RENAL IMPAIRMENT [None]
